FAERS Safety Report 17829504 (Version 1)
Quarter: 2020Q2

REPORT INFORMATION
  Report Type: Spontaneous
  Country: CN (occurrence: CN)
  Receive Date: 20200527
  Receipt Date: 20200527
  Transmission Date: 20200714
  Serious: Yes (Other)
  Sender: FDA-Public Use
  Company Number: CN-PFIZER INC-2020205147

PATIENT
  Sex: Female
  Weight: 55 kg

DRUGS (3)
  1. SOLU-MEDROL [Suspect]
     Active Substance: METHYLPREDNISOLONE SODIUM SUCCINATE
     Indication: IGA NEPHROPATHY
     Dosage: 0.5 G, 1X/DAY
     Route: 041
     Dates: start: 20200418, end: 20200420
  2. PREDNISONE ACETATE [Suspect]
     Active Substance: PREDNISONE ACETATE
     Indication: IGA NEPHROPATHY
     Dosage: 30 MG, 2X/DAY
     Route: 048
     Dates: start: 20200421, end: 20200509
  3. SOLU-MEDROL [Suspect]
     Active Substance: METHYLPREDNISOLONE SODIUM SUCCINATE
     Dosage: 0.5 G, 1X/DAY
     Route: 041
     Dates: start: 20200425, end: 20200509

REACTIONS (3)
  - Mouth ulceration [Recovering/Resolving]
  - Oral bacterial infection [Recovering/Resolving]
  - Staphylococcus test positive [Recovering/Resolving]

NARRATIVE: CASE EVENT DATE: 20200502
